FAERS Safety Report 5870676-0 (Version None)
Quarter: 2008Q3

REPORT INFORMATION
  Report Type: 
  Country: None (occurrence: None)
  Receive Date: 20080904
  Receipt Date: 20080904
  Transmission Date: 20090109
  Serious: Yes (Hospitalization)
  Sender: FDA-Public Use
  Company Number: PHEH1997US02284

PATIENT
  Sex: Female

DRUGS (6)
  1. NEORAL [Suspect]
     Route: 048
     Dates: start: 19951002
  2. CLONIDINE [Concomitant]
  3. PREDNISONE [Concomitant]
  4. PROCARDIA XL [Concomitant]
  5. VICODIN [Concomitant]
  6. SANDIMMUNE [Concomitant]

REACTIONS (2)
  - ABSCESS [None]
  - INTESTINAL ULCER PERFORATION [None]
